FAERS Safety Report 7137199-2 (Version None)
Quarter: 2010Q4

REPORT INFORMATION
  Report Type: 
  Country: None (occurrence: None)
  Receive Date: 20101119
  Receipt Date: 20101109
  Transmission Date: 20110411
  Serious: Yes (Hospitalization, Other)
  Sender: FDA-Public Use
  Company Number: AXC-2010-000295

PATIENT
  Age: 68 Year
  Sex: Male

DRUGS (4)
  1. PANCRELIPASE (PANCRELIPASE) UNKNOWN [Suspect]
     Indication: PRODUCT USED FOR UNKNOWN INDICATION
  2. WARFARIN SODIUM [Suspect]
     Indication: PRODUCT USED FOR UNKNOWN INDICATION
  3. AMLODIPINE [Suspect]
     Indication: PRODUCT USED FOR UNKNOWN INDICATION
  4. ATENOLOL [Suspect]
     Indication: PRODUCT USED FOR UNKNOWN INDICATION

REACTIONS (22)
  - ACTINOMYCOSIS [None]
  - BACTERIAL TEST POSITIVE [None]
  - BIFIDOBACTERIUM TEST POSITIVE [None]
  - BLOOD BICARBONATE DECREASED [None]
  - BLOOD CHLORIDE DECREASED [None]
  - BLOOD CREATININE INCREASED [None]
  - BLOOD SODIUM DECREASED [None]
  - BLOOD UREA INCREASED [None]
  - CHOLELITHIASIS [None]
  - HAEMODIALYSIS [None]
  - HEART SOUNDS ABNORMAL [None]
  - INTERNATIONAL NORMALISED RATIO INCREASED [None]
  - NOCARDIOSIS [None]
  - OEDEMA PERIPHERAL [None]
  - OLIGURIA [None]
  - PANCREATIC PSEUDOCYST [None]
  - PANCREATITIS [None]
  - PANCREATITIS NECROTISING [None]
  - PLEURAL EFFUSION [None]
  - PROTHROMBIN TIME PROLONGED [None]
  - TACHYCARDIA [None]
  - VEILLONELLA TEST POSITIVE [None]
